FAERS Safety Report 6868934-6 (Version None)
Quarter: 2010Q3

REPORT INFORMATION
  Report Type: 
  Country: None (occurrence: None)
  Receive Date: 20100722
  Receipt Date: 20080917
  Transmission Date: 20110219
  Serious: Yes (Other)
  Sender: FDA-Public Use
  Company Number: US-PFIZER INC-2008051608

PATIENT
  Sex: Female
  Weight: 81.6 kg

DRUGS (4)
  1. CHANTIX [Suspect]
     Indication: SMOKING CESSATION THERAPY
     Dates: start: 20080423, end: 20080618
  2. WELLBUTRIN [Concomitant]
     Indication: DEPRESSION
     Dates: end: 20080602
  3. MOBIC [Concomitant]
     Indication: OSTEOARTHRITIS
  4. FLEXERIL [Concomitant]

REACTIONS (2)
  - STOMATITIS [None]
  - SUICIDAL IDEATION [None]
